FAERS Safety Report 18264997 (Version 1)
Quarter: 2020Q3

REPORT INFORMATION
  Report Type: Spontaneous
  Country: US (occurrence: US)
  Receive Date: 20200914
  Receipt Date: 20200914
  Transmission Date: 20201103
  Serious: Yes (Hospitalization)
  Sender: FDA-Public Use
  Company Number: US-JNJFOC-A-US2020-200824

PATIENT
  Age: 78 Year
  Sex: Female
  Weight: 71.73 kg

DRUGS (3)
  1. REMODULIN [Suspect]
     Active Substance: TREPROSTINIL
     Indication: PRODUCT USED FOR UNKNOWN INDICATION
     Route: 065
  2. OPSUMIT [Suspect]
     Active Substance: MACITENTAN
     Indication: PULMONARY ARTERIAL HYPERTENSION
     Dosage: 10 MG, QD
     Route: 048
  3. SILDENAFIL CITRATE. [Concomitant]
     Active Substance: SILDENAFIL CITRATE

REACTIONS (17)
  - Pulmonary oedema [Unknown]
  - Urinary tract infection [Recovered/Resolved]
  - Dyspnoea [Unknown]
  - Infusion site irritation [Unknown]
  - Paraesthesia [Unknown]
  - Hypoaesthesia [Recovered/Resolved]
  - Vomiting [Recovered/Resolved]
  - Oxygen saturation decreased [Unknown]
  - Hypoxia [Unknown]
  - Tachycardia [Recovering/Resolving]
  - Infusion site discolouration [Unknown]
  - Seizure [Unknown]
  - Pain in jaw [Unknown]
  - Headache [Unknown]
  - Hypotension [Unknown]
  - Back pain [Unknown]
  - Infusion site dryness [Unknown]

NARRATIVE: CASE EVENT DATE: 202007
